FAERS Safety Report 6986541-1 (Version None)
Quarter: 2010Q3

REPORT INFORMATION
  Report Type: 
  Country: None (occurrence: None)
  Receive Date: 20100827
  Receipt Date: 20100405
  Transmission Date: 20110219
  Serious: Yes (Other)
  Sender: FDA-Public Use
  Company Number: AMAG201000196

PATIENT
  Age: 84 Year
  Sex: Male
  Weight: 116.1 kg

DRUGS (7)
  1. FERAHEME [Suspect]
     Indication: IRON DEFICIENCY ANAEMIA
     Dosage: 63.75 MG, SINGLE, INTRAVENOUS
     Route: 042
     Dates: start: 20100405, end: 20100405
  2. FLOMAX [Concomitant]
  3. MULTIVITAMIN [Concomitant]
  4. PRILOSEC (OMEPRAZOLE) [Concomitant]
  5. PROVENTIL HFA (SALBUTAMOL) [Concomitant]
  6. TRAZODONE HCL [Concomitant]
  7. ACETAMINOPHEN [Concomitant]

REACTIONS (3)
  - BLOOD PRESSURE DECREASED [None]
  - DIZZINESS [None]
  - FLUSHING [None]
